FAERS Safety Report 7623390-5 (Version None)
Quarter: 2011Q3

REPORT INFORMATION
  Report Type: 
  Country: None (occurrence: None)
  Receive Date: 20110720
  Receipt Date: 20110705
  Transmission Date: 20111222
  Serious: Yes (Other)
  Sender: FDA-Public Use
  Company Number: BE-SANOFI-AVENTIS-2011SA044338

PATIENT
  Age: 72 Year
  Sex: Female
  Weight: 74 kg

DRUGS (5)
  1. PHENPROCOUMON [Concomitant]
  2. RAMIPRIL [Concomitant]
  3. THIAZIDES [Concomitant]
  4. DRONEDARONE HCL [Suspect]
     Indication: ATRIAL FIBRILLATION
     Route: 048
     Dates: start: 20101220
  5. METOPROLOL TARTRATE [Concomitant]

REACTIONS (8)
  - OEDEMA PERIPHERAL [None]
  - CARDIAC FAILURE [None]
  - MUSCLE SPASMS [None]
  - DIZZINESS [None]
  - NAUSEA [None]
  - ABDOMINAL DISTENSION [None]
  - INFLUENZA [None]
  - WEIGHT INCREASED [None]
